FAERS Safety Report 9602276 (Version 1)
Quarter: 2013Q4

REPORT INFORMATION
  Report Type: Spontaneous
  Country: FR (occurrence: FR)
  Receive Date: 20131007
  Receipt Date: 20131007
  Transmission Date: 20140711
  Serious: Yes (Life-Threatening, Hospitalization, Other)
  Sender: FDA-Public Use
  Company Number: FR-PFIZER INC-2013281726

PATIENT
  Age: 15 Year
  Sex: Female

DRUGS (4)
  1. NEURONTIN [Suspect]
     Dosage: 60X400 MG, SINGLE
     Route: 048
     Dates: start: 20130910, end: 20130910
  2. SERESTA [Suspect]
     Dosage: 15X10 MG, SINGLE
     Route: 048
     Dates: start: 20130910, end: 20130910
  3. DOXAZOSIN [Suspect]
     Dosage: 10X4 MG, SINGLE
     Route: 048
     Dates: start: 20130910, end: 20130910
  4. PERMIXON [Suspect]
     Dosage: 10 DF, SINGLE
     Route: 048
     Dates: start: 20130910, end: 20130910

REACTIONS (3)
  - Intentional overdose [Unknown]
  - Coma [Recovered/Resolved]
  - Respiratory acidosis [Unknown]
